FAERS Safety Report 4353142-3 (Version None)
Quarter: 2004Q2

REPORT INFORMATION
  Report Type: 
  Country: None (occurrence: None)
  Receive Date: 20040429
  Receipt Date: 20040416
  Transmission Date: 20050107
  Serious: Yes (Other)
  Sender: FDA-Public Use
  Company Number: 2004026162

PATIENT
  Age: 66 Year
  Sex: Female

DRUGS (4)
  1. NEURONTIN [Suspect]
     Indication: PAIN
     Dosage: 900 MG (TID)
     Dates: start: 20031218, end: 20040116
  2. APOREX (DEXTROPROPOXYPHENE HYDROCHLORIDE, PARACETAMOL) [Concomitant]
  3. HYDROXYZINE HYDROCHLORIDE [Concomitant]
  4. THIOCOLCHICOSIDE [Concomitant]

REACTIONS (1)
  - HEPATITIS ACUTE [None]
